FAERS Safety Report 14554184 (Version 1)
Quarter: 2018Q1

REPORT INFORMATION
  Report Type: Spontaneous
  Country: FI (occurrence: FI)
  Receive Date: 20180220
  Receipt Date: 20180220
  Transmission Date: 20180509
  Serious: Yes (Hospitalization)
  Sender: FDA-Public Use
  Company Number: FI-ABBVIE-18K-055-2261752-00

PATIENT
  Age: 58 Year
  Sex: Male

DRUGS (2)
  1. HUMIRA [Suspect]
     Active Substance: ADALIMUMAB
     Dosage: START DATE : SUMMER 2017
     Route: 058
     Dates: start: 2017, end: 20180215
  2. HUMIRA [Suspect]
     Active Substance: ADALIMUMAB
     Indication: HIDRADENITIS
     Dosage: START DATE : AUTUMN 2016, STOP DATE : SUMMER 2017
     Route: 058
     Dates: start: 2016, end: 2017

REACTIONS (4)
  - C-reactive protein increased [Unknown]
  - Drug effect incomplete [Unknown]
  - Hidradenitis [Recovered/Resolved]
  - Hidradenitis [Unknown]

NARRATIVE: CASE EVENT DATE: 2017
